FAERS Safety Report 7514269-8 (Version None)
Quarter: 2011Q2

REPORT INFORMATION
  Report Type: 
  Country: None (occurrence: None)
  Receive Date: 20110601
  Receipt Date: 20110527
  Transmission Date: 20111010
  Serious: Yes (Life-Threatening, Hospitalization, Other)
  Sender: FDA-Public Use
  Company Number: IT-BIOGENIDEC-2011BI007776

PATIENT
  Age: 32 Year
  Sex: Male

DRUGS (8)
  1. HUMALOG [Concomitant]
  2. LANTUS [Concomitant]
     Indication: TYPE 1 DIABETES MELLITUS
  3. HUMALOG [Concomitant]
     Indication: TYPE 1 DIABETES MELLITUS
  4. TYSABRI [Suspect]
     Route: 042
     Dates: start: 20110416
  5. TYSABRI [Suspect]
     Route: 042
     Dates: start: 20110521
  6. HUMALOG [Concomitant]
     Indication: TYPE 1 DIABETES MELLITUS
  7. TYSABRI [Suspect]
     Indication: RELAPSING-REMITTING MULTIPLE SCLEROSIS
     Route: 042
     Dates: start: 20100312
  8. TYSABRI [Suspect]
     Route: 042
     Dates: start: 20110312

REACTIONS (1)
  - HYPOGLYCAEMIA [None]
